FAERS Safety Report 10044516 (Version 1)
Quarter: 2014Q1

REPORT INFORMATION
  Report Type: Spontaneous
  Country: PH (occurrence: PH)
  Receive Date: 20140328
  Receipt Date: 20140328
  Transmission Date: 20141002
  Serious: Yes (Death, Other)
  Sender: FDA-Public Use
  Company Number: PH-MERCK-1403PHL011436

PATIENT
  Sex: Male

DRUGS (1)
  1. COZAAR [Suspect]
     Dosage: 100 MG (1 TABLET), ONCE A DAY
     Route: 048
     Dates: start: 20121207

REACTIONS (2)
  - Pneumonia [Fatal]
  - Drug dose omission [Unknown]
